FAERS Safety Report 10303194 (Version 2)
Quarter: 2014Q3

REPORT INFORMATION
  Report Type: Spontaneous
  Country: JP (occurrence: JP)
  Receive Date: 20140714
  Receipt Date: 20140724
  Transmission Date: 20150326
  Serious: Yes (Other)
  Sender: FDA-Public Use
  Company Number: JP-WATSON-2014-15146

PATIENT
  Age: 62 Year
  Sex: Male

DRUGS (5)
  1. DOCETAXEL (UNKNOWN) [Suspect]
     Active Substance: DOCETAXEL
     Indication: OESOPHAGEAL CARCINOMA
     Dosage: UNK
     Route: 065
  2. METHYLPREDNISOLONE (WATSON LABORATORIES) [Suspect]
     Active Substance: METHYLPREDNISOLONE
     Dosage: 16 MG, DAILY, MAINTENANCE THERAPY
     Route: 065
  3. METHYLPREDNISOLONE (WATSON LABORATORIES) [Suspect]
     Active Substance: METHYLPREDNISOLONE
     Indication: INTERSTITIAL LUNG DISEASE
     Dosage: 1 G, DAILY FOR 3 DAYS
     Route: 065
  4. CISPLATIN (UNKNOWN) [Suspect]
     Active Substance: CISPLATIN
     Indication: OESOPHAGEAL CARCINOMA
     Dosage: 80 MG/M2, CYCLICAL
     Route: 065
  5. 5-FLUOROURACIL                     /00098802/ [Suspect]
     Active Substance: FLUOROURACIL
     Indication: OESOPHAGEAL CARCINOMA
     Dosage: 800 MG/M2, CYCLICAL
     Route: 065

REACTIONS (2)
  - Cytomegalovirus colitis [Recovering/Resolving]
  - Large intestine perforation [Recovered/Resolved with Sequelae]
